FAERS Safety Report 6357369-0 (Version None)
Quarter: 2009Q3

REPORT INFORMATION
  Report Type: 
  Country: None (occurrence: None)
  Receive Date: 20090916
  Receipt Date: 20071009
  Transmission Date: 20100115
  Serious: Yes (Hospitalization, Other)
  Sender: FDA-Public Use
  Company Number: US-ASTRAZENECA-2007UW02452

PATIENT
  Age: 51 Year
  Sex: Female
  Weight: 90.3 kg

DRUGS (17)
  1. SEROQUEL [Suspect]
     Indication: SCHIZOAFFECTIVE DISORDER
     Dosage: 50 MG- 900 MG
     Route: 048
     Dates: start: 20020301, end: 20070326
  2. SEROQUEL [Suspect]
     Indication: DEPRESSION
     Dosage: 50 MG- 900 MG
     Route: 048
     Dates: start: 20020301, end: 20070326
  3. SEROQUEL [Suspect]
     Dosage: 25-500 MG
     Route: 048
     Dates: start: 20020326
  4. SEROQUEL [Suspect]
     Dosage: 25-500 MG
     Route: 048
     Dates: start: 20020326
  5. ZYPREXA [Concomitant]
     Dates: start: 20020301
  6. RISPERDAL [Concomitant]
     Dosage: 2 MG- 3 MG
     Dates: start: 20040501, end: 20040601
  7. RISPERDAL [Concomitant]
     Dates: start: 20060801, end: 20060901
  8. ABILIFY [Concomitant]
     Dosage: 10 MG TO 30 MG
     Dates: start: 20060301, end: 20060701
  9. GEODON [Concomitant]
     Dates: start: 20040401, end: 20040901
  10. GEODON [Concomitant]
     Dates: start: 20070301, end: 20080101
  11. DEPAKOTE [Concomitant]
     Dates: start: 20050201
  12. ALPRAZOLAM [Concomitant]
     Dates: start: 20070101, end: 20080101
  13. LORAZEPAM [Concomitant]
  14. ZOLOFT [Concomitant]
     Dates: start: 20070201, end: 20070501
  15. DIAZEPAM [Concomitant]
     Dates: start: 20070101
  16. COUMADIN [Concomitant]
     Dosage: 1-7.5 MG
     Dates: start: 20020215
  17. HYDROCODONE [Concomitant]
     Indication: PAIN
     Route: 048
     Dates: start: 20011121

REACTIONS (28)
  - ATRIAL FIBRILLATION [None]
  - ATRIAL FLUTTER [None]
  - BALANCE DISORDER [None]
  - CARDIAC FAILURE CONGESTIVE [None]
  - CARDIOMYOPATHY [None]
  - CEREBROVASCULAR ACCIDENT [None]
  - COAGULOPATHY [None]
  - DIABETES MELLITUS [None]
  - DIABETIC CARDIOMYOPATHY [None]
  - EXTRAPYRAMIDAL DISORDER [None]
  - FOOD POISONING [None]
  - GAIT DISTURBANCE [None]
  - GASTROENTERITIS SALMONELLA [None]
  - HEART VALVE OPERATION [None]
  - HEART VALVE REPLACEMENT [None]
  - HYPERTENSION [None]
  - LEUKOCYTOSIS [None]
  - LUNG OPERATION [None]
  - MECHANICAL COMPLICATION OF IMPLANT [None]
  - MITRAL VALVE REPLACEMENT [None]
  - MUSCULAR WEAKNESS [None]
  - PANCREATITIS [None]
  - PARKINSON'S DISEASE [None]
  - RESTLESS LEGS SYNDROME [None]
  - SURGERY [None]
  - TARDIVE DYSKINESIA [None]
  - THROMBOCYTOPENIA [None]
  - TYPE 2 DIABETES MELLITUS [None]
